FAERS Safety Report 13258489 (Version 2)
Quarter: 2017Q3

REPORT INFORMATION
  Report Type: Spontaneous
  Country: US (occurrence: US)
  Receive Date: 20170222
  Receipt Date: 20170901
  Transmission Date: 20171127
  Serious: Yes (Hospitalization, Other)
  Sender: FDA-Public Use
  Company Number: US-IMPAX LABORATORIES, INC-2017-IPXL-00357

PATIENT
  Age: 74 Year
  Sex: Female
  Weight: 70 kg

DRUGS (13)
  1. ATORVASTATIN [Concomitant]
     Active Substance: ATORVASTATIN
     Indication: PRODUCT USED FOR UNKNOWN INDICATION
     Dosage: 80 MG, 1 /DAY
     Route: 065
  2. KLONOPIN [Concomitant]
     Active Substance: CLONAZEPAM
     Dosage: 0.75 MG, PRN
     Route: 065
  3. NITRO [Concomitant]
     Active Substance: NITROGLYCERIN
     Indication: PRODUCT USED FOR UNKNOWN INDICATION
     Dosage: UNK, PRN
     Route: 065
  4. MIRALAX [Concomitant]
     Active Substance: POLYETHYLENE GLYCOL 3350
     Indication: CONSTIPATION
     Dosage: 17 GM, 1 TABLET, 1 /DAY
     Route: 065
  5. ASPIRIN 81 [Concomitant]
     Active Substance: ASPIRIN
     Indication: PRODUCT USED FOR UNKNOWN INDICATION
     Dosage: 81 MG, 1 /DAY
     Route: 065
  6. ALPRAZOLAM. [Concomitant]
     Active Substance: ALPRAZOLAM
     Indication: PRODUCT USED FOR UNKNOWN INDICATION
     Dosage: 0.25 MG, EVERY 12HR AS NEEDED
     Route: 065
  7. COZAAR [Concomitant]
     Active Substance: LOSARTAN POTASSIUM
     Indication: PRODUCT USED FOR UNKNOWN INDICATION
     Dosage: 25 MG, BID
     Route: 065
  8. RYTARY [Suspect]
     Active Substance: CARBIDOPA\LEVODOPA
     Indication: PARKINSON^S DISEASE
     Dosage: 23.75/95 MG, 3 CAPSULES, 4 TIMES DAILY
     Route: 048
     Dates: start: 20151022
  9. RYTARY [Suspect]
     Active Substance: CARBIDOPA\LEVODOPA
     Dosage: 61.25/245 MG, FOUR TABLETS A DAY IN THE DAYTIME FROM 8AM-11PM
     Route: 048
  10. XANAX [Suspect]
     Active Substance: ALPRAZOLAM
     Indication: TORTICOLLIS
     Dosage: 1 PILL, UNK
     Route: 065
  11. RYTARY [Suspect]
     Active Substance: CARBIDOPA\LEVODOPA
     Dosage: 48.75/195 MG, 2 CAPSULES, 4 TIMES A DAY
     Route: 048
  12. KLONOPIN [Concomitant]
     Active Substance: CLONAZEPAM
     Indication: NECK PAIN
     Dosage: 0.5 MG, BID
     Route: 065
  13. GLYCOLAX [Concomitant]
     Active Substance: POLYETHYLENE GLYCOL 3350
     Indication: CONSTIPATION
     Dosage: 17 GM, 1 TABLET, 1 /DAY
     Route: 065

REACTIONS (10)
  - Hypoaesthesia [Unknown]
  - Blood pressure fluctuation [Unknown]
  - Diplopia [Unknown]
  - Somnolence [Unknown]
  - Myocardial infarction [Recovered/Resolved]
  - Drooling [Unknown]
  - Muscle rigidity [Unknown]
  - Fall [Unknown]
  - Sensation of foreign body [Unknown]
  - Balance disorder [Unknown]

NARRATIVE: CASE EVENT DATE: 201701
